FAERS Safety Report 10913830 (Version 1)
Quarter: 2015Q1

REPORT INFORMATION
  Report Type: Spontaneous
  Country: FR (occurrence: None)
  Receive Date: 20150310
  Receipt Date: 20150310
  Transmission Date: 20150721
  Serious: Yes (Life-Threatening, Hospitalization, Other)
  Sender: FDA-Public Use
  Company Number: ADR-2015-00477

PATIENT
  Age: 43 Year
  Sex: Male

DRUGS (2)
  1. LIORESAL [Suspect]
     Active Substance: BACLOFEN
     Indication: ALCOHOLISM
  2. ALCOHOL (ETHANOL) [Suspect]
     Active Substance: ALCOHOL

REACTIONS (10)
  - Toxic encephalopathy [None]
  - Intentional overdose [None]
  - Brain injury [None]
  - Alcohol withdrawal syndrome [None]
  - Restlessness [None]
  - Rhabdomyolysis [None]
  - Coma [None]
  - Clonus [None]
  - Poisoning deliberate [None]
  - Nuclear magnetic resonance imaging brain abnormal [None]

NARRATIVE: CASE EVENT DATE: 20140917
